FAERS Safety Report 5691691-6 (Version None)
Quarter: 2008Q2

REPORT INFORMATION
  Report Type: 
  Country: None (occurrence: None)
  Receive Date: 20080402
  Receipt Date: 20061110
  Transmission Date: 20081010
  Serious: Yes (Death)
  Sender: FDA-Public Use
  Company Number: US-ROCHE-471060

PATIENT
  Age: 64 Year
  Sex: Male

DRUGS (2)
  1. PEGASYS [Suspect]
     Route: 058
     Dates: start: 20060703
  2. RIBAVIRIN [Suspect]
     Route: 048
     Dates: start: 20060703

REACTIONS (1)
  - DEATH [None]
